FAERS Safety Report 9944442 (Version 1)
Quarter: 2014Q1

REPORT INFORMATION
  Report Type: Report from Study
  Country: US (occurrence: US)
  Receive Date: 20140303
  Receipt Date: 20140303
  Transmission Date: 20141002
  Serious: No
  Sender: FDA-Public Use
  Company Number: US-ABBVIE-13P-163-1048518-00

PATIENT
  Age: 28 Year
  Sex: Female

DRUGS (5)
  1. HUMIRA [Suspect]
     Indication: CROHN^S DISEASE
     Dates: start: 20130124, end: 20130124
  2. HUMIRA [Suspect]
     Dates: start: 20130125, end: 20130125
  3. HUMIRA [Suspect]
     Dates: start: 20130207
  4. PENTASA [Concomitant]
     Indication: CROHN^S DISEASE
  5. PROZAC [Concomitant]
     Indication: DEPRESSION

REACTIONS (4)
  - Fatigue [Unknown]
  - Injection site pain [Not Recovered/Not Resolved]
  - Nausea [Unknown]
  - Vomiting [Unknown]
